FAERS Safety Report 7871846-2 (Version None)
Quarter: 2011Q4

REPORT INFORMATION
  Report Type: 
  Country: None (occurrence: None)
  Receive Date: 20111029
  Receipt Date: 20110308
  Transmission Date: 20120403
  Serious: No
  Sender: FDA-Public Use
  Company Number: US-AMGEN-USASP2011013082

PATIENT
  Sex: Female
  Weight: 74.83 kg

DRUGS (6)
  1. ENBREL [Suspect]
     Dosage: 50 MG, QWK
  2. ADVAIR DISKUS 100/50 [Concomitant]
  3. LISINOPRIL [Concomitant]
     Dosage: 20 MG, UNK
     Route: 048
  4. HUMULIN                            /00646001/ [Concomitant]
  5. LANTUS [Concomitant]
  6. LEFLUNOMIDE [Concomitant]
     Dosage: 10 MG, UNK
     Route: 048

REACTIONS (1)
  - COUGH [None]
